FAERS Safety Report 9908858 (Version 1)
Quarter: 2014Q1

REPORT INFORMATION
  Report Type: Spontaneous
  Country: AU (occurrence: AU)
  Receive Date: 20140219
  Receipt Date: 20140219
  Transmission Date: 20141002
  Serious: Yes (Hospitalization)
  Sender: FDA-Public Use
  Company Number: AU-ASTELLAS-2014JP001294

PATIENT
  Age: 63 Year
  Sex: Male

DRUGS (17)
  1. TACROLIMUS [Suspect]
     Indication: RENAL TRANSPLANT
     Dosage: 0.075 MG/KG, BID
     Route: 065
  2. BASILIXIMAB [Suspect]
     Indication: IMMUNOSUPPRESSION
     Route: 065
  3. BASILIXIMAB [Suspect]
     Route: 065
  4. PREDNISOLONE [Concomitant]
     Indication: RHEUMATOID ARTHRITIS
     Route: 065
  5. METHYLPREDNISOLONE [Concomitant]
     Indication: IMMUNOSUPPRESSION
     Route: 042
  6. METHYLPREDNISOLONE [Concomitant]
     Route: 042
  7. METHYLPREDNISOLONE [Concomitant]
     Dosage: 250 MG, UNKNOWN/D
     Route: 042
  8. PREDNISOLONE [Concomitant]
     Indication: RENAL TRANSPLANT
     Dosage: 30 MG, UNKNOWN/D
     Route: 048
  9. PREDNISOLONE [Concomitant]
     Dosage: 50 MG, UNKNOWN/D
     Route: 048
  10. PREDNISOLONE [Concomitant]
     Dosage: 40 MG, UNKNOWN/D
     Route: 048
  11. PREDNISOLONE [Concomitant]
     Route: 048
  12. PREDNISOLONE [Concomitant]
     Dosage: 20 MG, UNKNOWN/D
     Route: 048
  13. PREDNISOLONE [Concomitant]
     Dosage: 10 MG, UNKNOWN/D
     Route: 048
  14. MYCOPHENOLATE MOFETIL [Concomitant]
     Indication: RENAL TRANSPLANT
     Dosage: 1 G, BID
     Route: 065
  15. MYCOPHENOLATE MOFETIL [Concomitant]
     Dosage: 1 G, BID
     Route: 065
  16. MYCOPHENOLATE MOFETIL [Concomitant]
     Dosage: 500 MG, BID
     Route: 065
  17. SULFAMETHOXAZOLE W/TRIMETHOPRIM [Concomitant]
     Indication: PROPHYLAXIS
     Route: 065

REACTIONS (1)
  - Polyarthritis [Recovered/Resolved]
